FAERS Safety Report 20407267 (Version 3)
Quarter: 2022Q1

REPORT INFORMATION
  Report Type: Spontaneous
  Country: US (occurrence: US)
  Receive Date: 20220131
  Receipt Date: 20220210
  Transmission Date: 20220424
  Serious: Yes (Other)
  Sender: FDA-Public Use
  Company Number: US-BAYER-2022A012995

PATIENT
  Age: 29 Year
  Sex: Male

DRUGS (2)
  1. KOVALTRY [Suspect]
     Active Substance: ANTIHEMOPHILIC FACTOR, HUMAN RECOMBINANT
     Dosage: 4000 U
     Route: 042
  2. KOVALTRY [Suspect]
     Active Substance: ANTIHEMOPHILIC FACTOR, HUMAN RECOMBINANT
     Dosage: 4000 U TREATED THE SHOULDER BLEED
     Route: 042
     Dates: start: 20220110, end: 20220110

REACTIONS (2)
  - Haemarthrosis [Recovered/Resolved]
  - Limb injury [None]

NARRATIVE: CASE EVENT DATE: 20220110
